FAERS Safety Report 9246434 (Version 1)
Quarter: 2013Q2

REPORT INFORMATION
  Report Type: Spontaneous
  Country: IT (occurrence: IT)
  Receive Date: 20130422
  Receipt Date: 20130422
  Transmission Date: 20140414
  Serious: Yes (Other)
  Sender: FDA-Public Use
  Company Number: IT-ASTRAZENECA-2013SE24840

PATIENT
  Age: 75 Year
  Sex: Male

DRUGS (7)
  1. BRILIQUE [Suspect]
     Indication: PROSTHETIC VESSEL IMPLANTATION
     Route: 048
     Dates: start: 20130327, end: 20130403
  2. CARDIOASPIRIN [Concomitant]
     Route: 048
  3. LUVION [Concomitant]
     Route: 048
  4. PROCAPTAN [Concomitant]
     Route: 048
  5. TORVAST [Concomitant]
     Route: 048
  6. CONGESCOR [Concomitant]
     Route: 048
  7. PANTORC [Concomitant]
     Route: 048

REACTIONS (1)
  - Thrombocytopenia [Not Recovered/Not Resolved]
